FAERS Safety Report 4860078-8 (Version None)
Quarter: 2005Q4

REPORT INFORMATION
  Report Type: 
  Country: None (occurrence: None)
  Receive Date: 20051219
  Receipt Date: 20051005
  Transmission Date: 20060501
  Serious: Yes (Hospitalization)
  Sender: FDA-Public Use
  Company Number: US-MERCK-0510USA04522

PATIENT
  Age: 54 Year
  Sex: Male
  Weight: 105 kg

DRUGS (8)
  1. VIOXX [Suspect]
     Indication: BACK PAIN
     Route: 048
     Dates: start: 19990101
  2. LANOXIN [Concomitant]
     Route: 048
  3. LOPRESSOR [Concomitant]
     Route: 048
  4. LOPRESSOR [Concomitant]
     Route: 048
  5. ZESTRIL [Concomitant]
     Route: 047
  6. COUMADIN [Concomitant]
     Route: 048
  7. ELAVIL [Concomitant]
     Route: 048
  8. VICODIN [Concomitant]
     Route: 065

REACTIONS (9)
  - ANAL FISTULA [None]
  - CARDIAC FAILURE CONGESTIVE [None]
  - CHEST PAIN [None]
  - CHOLELITHIASIS [None]
  - GASTROINTESTINAL HAEMORRHAGE [None]
  - GASTROOESOPHAGEAL REFLUX DISEASE [None]
  - HELICOBACTER INFECTION [None]
  - NAUSEA [None]
  - OSTEOARTHRITIS [None]
